FAERS Safety Report 11029444 (Version 2)
Quarter: 2015Q2

REPORT INFORMATION
  Report Type: Spontaneous
  Country: US (occurrence: US)
  Receive Date: 20150415
  Receipt Date: 20150604
  Transmission Date: 20150821
  Serious: No
  Sender: FDA-Public Use
  Company Number: US-ASTRAZENECA-2015SE33047

PATIENT
  Age: 46 Year
  Sex: Male
  Weight: 140.2 kg

DRUGS (21)
  1. LOSARTAN [Concomitant]
     Active Substance: LOSARTAN
  2. BYDUREON [Suspect]
     Active Substance: EXENATIDE
     Indication: WEIGHT DECREASED
     Route: 058
     Dates: start: 20150127
  3. LOPID [Concomitant]
     Active Substance: GEMFIBROZIL
  4. NAPROXEN. [Concomitant]
     Active Substance: NAPROXEN
  5. BYDUREON [Suspect]
     Active Substance: EXENATIDE
     Indication: GLUCOSE TOLERANCE IMPAIRED
     Route: 058
     Dates: start: 20150127
  6. PRILOSEC OTC [Suspect]
     Active Substance: OMEPRAZOLE MAGNESIUM
     Indication: GASTROOESOPHAGEAL REFLUX DISEASE
     Route: 048
  7. BYDUREON [Suspect]
     Active Substance: EXENATIDE
     Indication: DIABETES MELLITUS
     Route: 058
     Dates: start: 20150127
  8. LIPITOR [Concomitant]
     Active Substance: ATORVASTATIN CALCIUM
  9. OMEPRAZOLE. [Concomitant]
     Active Substance: OMEPRAZOLE
  10. NABUMETONE. [Concomitant]
     Active Substance: NABUMETONE
  11. METFORMIN [Concomitant]
     Active Substance: METFORMIN HYDROCHLORIDE
  12. LEXAPRO [Concomitant]
     Active Substance: ESCITALOPRAM OXALATE
  13. SOTALOL. [Concomitant]
     Active Substance: SOTALOL
  14. POTASSIUM CHLORIDE. [Concomitant]
     Active Substance: POTASSIUM CHLORIDE
  15. NORVASC [Concomitant]
     Active Substance: AMLODIPINE BESYLATE
  16. PEPTO-BISMOL [Concomitant]
     Active Substance: BISMUTH SUBSALICYLATE\CALCIUM CARBONATE
  17. TEGRETOL [Concomitant]
     Active Substance: CARBAMAZEPINE
  18. VITAMIN D [Concomitant]
     Active Substance: CHOLECALCIFEROL
  19. FISH OIL [Concomitant]
     Active Substance: FISH OIL
  20. TESTOSTERONE. [Concomitant]
     Active Substance: TESTOSTERONE
  21. LASIX [Concomitant]
     Active Substance: FUROSEMIDE

REACTIONS (7)
  - Flatulence [Recovered/Resolved]
  - Intentional product misuse [Unknown]
  - Product use issue [Unknown]
  - Glucose tolerance impaired [Unknown]
  - Eructation [Not Recovered/Not Resolved]
  - Dyspepsia [Recovered/Resolved]
  - Abdominal discomfort [Unknown]

NARRATIVE: CASE EVENT DATE: 2015
